FAERS Safety Report 9490734 (Version 1)
Quarter: 2013Q3

REPORT INFORMATION
  Report Type: Spontaneous
  Country: US (occurrence: None)
  Receive Date: 20130828
  Receipt Date: 20130828
  Transmission Date: 20140515
  Serious: Yes (Hospitalization)
  Sender: FDA-Public Use
  Company Number: None

PATIENT
  Age: 9 Month
  Sex: Male
  Weight: .07 kg

DRUGS (2)
  1. METHOTREXATE [Suspect]
     Dates: start: 20130816
  2. LESTAURTINIB [Concomitant]

REACTIONS (10)
  - Neutropenia [None]
  - Stomatitis [None]
  - Mucosal inflammation [None]
  - Agitation [None]
  - Pain [None]
  - Pancytopenia [None]
  - Dystonia [None]
  - Respiratory distress [None]
  - Otitis media acute [None]
  - Tympanic membrane perforation [None]
